FAERS Safety Report 13728181 (Version 1)
Quarter: 2017Q3

REPORT INFORMATION
  Report Type: Spontaneous
  Country: FR (occurrence: FR)
  Receive Date: 20170707
  Receipt Date: 20170707
  Transmission Date: 20171127
  Serious: Yes (Hospitalization)
  Sender: FDA-Public Use
  Company Number: FR-009507513-1706FRA010763

PATIENT
  Age: 51 Year
  Sex: Male

DRUGS (2)
  1. AMOXICILLIN. [Suspect]
     Active Substance: AMOXICILLIN
     Indication: TOOTH EXTRACTION
     Dosage: UNK, UNKNOWN
     Route: 065
     Dates: start: 20170509, end: 20170514
  2. CELESTENE [Suspect]
     Active Substance: BETAMETHASONE
     Indication: TOOTH EXTRACTION
     Dosage: UNK, UNKNOWN
     Route: 065
     Dates: start: 20170509, end: 20170514

REACTIONS (1)
  - Pancreatitis acute [Recovering/Resolving]

NARRATIVE: CASE EVENT DATE: 20170514
